FAERS Safety Report 24258923 (Version 2)
Quarter: 2024Q4

REPORT INFORMATION
  Report Type: Spontaneous
  Country: IT (occurrence: IT)
  Receive Date: 20240828
  Receipt Date: 20241008
  Transmission Date: 20250115
  Serious: Yes (Hospitalization, Congenital Anomaly)
  Sender: PFIZER
  Company Number: None

PATIENT
  Sex: Female
  Weight: 2 kg

DRUGS (1)
  1. RITUXIMAB [Suspect]
     Active Substance: RITUXIMAB
     Dosage: EXPOSURE TO RITUXIMAB DURING PREGNANCY
     Route: 064

REACTIONS (5)
  - Maternal exposure during pregnancy [Not Recovered/Not Resolved]
  - Neonatal hypoacusis [Not Recovered/Not Resolved]
  - Cleft palate [Not Recovered/Not Resolved]
  - Microcephaly [Not Recovered/Not Resolved]
  - Low birth weight baby [Unknown]

NARRATIVE: CASE EVENT DATE: 20240311
